FAERS Safety Report 7200482-6 (Version None)
Quarter: 2010Q4

REPORT INFORMATION
  Report Type: 
  Country: None (occurrence: None)
  Receive Date: 20101228
  Receipt Date: 20101222
  Transmission Date: 20110411
  Serious: Yes (Hospitalization)
  Sender: FDA-Public Use
  Company Number: IT-PFIZER INC-2010157570

PATIENT
  Age: 26 Year
  Sex: Female

DRUGS (2)
  1. ZAVEDOS [Suspect]
     Indication: ACUTE PROMYELOCYTIC LEUKAEMIA
     Dosage: 24 MG, ALTERNATE DAY
     Route: 042
     Dates: start: 20101005, end: 20101011
  2. VESANOID [Suspect]
     Indication: ACUTE PROMYELOCYTIC LEUKAEMIA
     Dosage: 50 MG, 1X/DAY
     Route: 048
     Dates: start: 20101004, end: 20101104

REACTIONS (2)
  - PSEUDOMONAL SEPSIS [None]
  - SKIN NECROSIS [None]
